FAERS Safety Report 23216394 (Version 1)
Quarter: 2023Q4

REPORT INFORMATION
  Report Type: Spontaneous
  Country: US (occurrence: US)
  Receive Date: 20231122
  Receipt Date: 20231122
  Transmission Date: 20240109
  Serious: No
  Sender: FDA-Public Use
  Company Number: US-AUROBINDO-AUR-APL-2022-048679

PATIENT
  Age: 15 Year
  Sex: Female

DRUGS (1)
  1. FLUCONAZOLE [Suspect]
     Active Substance: FLUCONAZOLE
     Indication: Mucocutaneous candidiasis
     Dosage: 150 MILLIGRAM, AS DIRECTED
     Route: 048

REACTIONS (3)
  - Cough [Unknown]
  - Product odour abnormal [Unknown]
  - Product taste abnormal [Unknown]
